FAERS Safety Report 6759784-X (Version None)
Quarter: 2010Q2

REPORT INFORMATION
  Report Type: 
  Country: None (occurrence: None)
  Receive Date: 20100608
  Receipt Date: 20100602
  Transmission Date: 20101027
  Serious: Yes (Hospitalization)
  Sender: FDA-Public Use
  Company Number: GB-SP-2010-03177

PATIENT
  Age: 66 Year
  Sex: Male

DRUGS (8)
  1. IMMUCYST [Suspect]
     Indication: BLADDER TRANSITIONAL CELL CARCINOMA
     Route: 043
     Dates: start: 20091113, end: 20100422
  2. ALLOPURINOL [Concomitant]
     Indication: GOUT
     Route: 048
  3. ASPIRIN [Concomitant]
     Indication: CARDIAC FAILURE
     Route: 048
  4. ACETAMINOPHEN AND CODEINE PHOSPHATE [Concomitant]
     Indication: PAIN
     Route: 048
  5. RAMIPRIL [Concomitant]
     Indication: HYPERTENSION
     Route: 048
  6. SIMVASTATIN [Concomitant]
     Indication: HYPERCHOLESTEROLAEMIA
     Route: 048
  7. TAMSULOSIN HCL [Concomitant]
     Indication: BLADDER OBSTRUCTION
     Route: 048
  8. BIMATOPROST AND TIMOLOL MALEATE [Concomitant]
     Indication: GLAUCOMA
     Route: 061

REACTIONS (6)
  - ARTHRALGIA [None]
  - ARTHRITIS [None]
  - BOVINE TUBERCULOSIS [None]
  - DYSPNOEA [None]
  - LIVER FUNCTION TEST ABNORMAL [None]
  - PYREXIA [None]
